FAERS Safety Report 25996305 (Version 1)
Quarter: 2025Q4

REPORT INFORMATION
  Report Type: Report from Study
  Country: KR (occurrence: KR)
  Receive Date: 20251104
  Receipt Date: 20251104
  Transmission Date: 20260117
  Serious: Yes (Other)
  Sender: JOHNSON AND JOHNSON
  Company Number: KR-JNJFOC-20251031882

PATIENT
  Age: 59 Year
  Sex: Male

DRUGS (16)
  1. TECLISTAMAB [Suspect]
     Active Substance: TECLISTAMAB
     Indication: Plasma cell myeloma refractory
     Dosage: DOSAGE: 4.8MG
     Dates: start: 20250415, end: 20250415
  2. TECLISTAMAB [Suspect]
     Active Substance: TECLISTAMAB
     Dosage: DOSAGE: 24MG
     Dates: start: 20250422, end: 20250422
  3. TECLISTAMAB [Suspect]
     Active Substance: TECLISTAMAB
     Dosage: DOSAGE: 120 MG
     Dates: start: 20250424, end: 20250424
  4. TECLISTAMAB [Suspect]
     Active Substance: TECLISTAMAB
     Dosage: DOSAGE: 120 MG
     Dates: start: 20250502, end: 20250502
  5. TECLISTAMAB [Suspect]
     Active Substance: TECLISTAMAB
     Dosage: DOSAGE: 120 MG
     Dates: start: 20250508, end: 20250508
  6. TECLISTAMAB [Suspect]
     Active Substance: TECLISTAMAB
     Dosage: DOSAGE: 120 MG
     Dates: start: 20250515, end: 20250515
  7. TECLISTAMAB [Suspect]
     Active Substance: TECLISTAMAB
     Dosage: DOSAGE: 120 MG
     Dates: start: 20250522, end: 20250522
  8. TECLISTAMAB [Suspect]
     Active Substance: TECLISTAMAB
     Dosage: DOSAGE: 120 MG
     Dates: start: 20250529, end: 20250529
  9. TECLISTAMAB [Suspect]
     Active Substance: TECLISTAMAB
     Dosage: DOSAGE: 120 MG
     Dates: start: 20250605, end: 20250605
  10. TECLISTAMAB [Suspect]
     Active Substance: TECLISTAMAB
     Dosage: DOSAGE: 120 MG
     Dates: start: 20250612, end: 20250612
  11. TECLISTAMAB [Suspect]
     Active Substance: TECLISTAMAB
     Dosage: DOSAGE: 120 MG
     Dates: start: 20250619, end: 20250619
  12. TECLISTAMAB [Suspect]
     Active Substance: TECLISTAMAB
     Dosage: DOSAGE: 120 MG
     Dates: start: 20250703, end: 20250703
  13. TECLISTAMAB [Suspect]
     Active Substance: TECLISTAMAB
     Dosage: DOSAGE: 120 MG
     Dates: start: 20250717, end: 20250717
  14. TECLISTAMAB [Suspect]
     Active Substance: TECLISTAMAB
     Dosage: DOSAGE: 120 MG
     Dates: start: 20250731, end: 20250731
  15. TECLISTAMAB [Suspect]
     Active Substance: TECLISTAMAB
     Dosage: DOSAGE-153 MG
     Dates: start: 20250814, end: 20250814
  16. TECLISTAMAB [Suspect]
     Active Substance: TECLISTAMAB
     Dosage: DOSAGE-24MG
     Dates: start: 20250422, end: 20250422

REACTIONS (7)
  - Nephropathy toxic [Recovered/Resolved]
  - Thrombocytopenia [Not Recovered/Not Resolved]
  - Neutropenia [Recovered/Resolved]
  - Pyrexia [Recovered/Resolved]
  - Liver function test abnormal [Recovered/Resolved]
  - Epistaxis [Recovered/Resolved]
  - Sinusitis [Recovered/Resolved]

NARRATIVE: CASE EVENT DATE: 20250416
